FAERS Safety Report 4518667-6 (Version None)
Quarter: 2005Q1

REPORT INFORMATION
  Report Type: 
  Country: None (occurrence: None)
  Receive Date: 20041029
  Receipt Date: 20040917
  Transmission Date: 20050727
  Serious: Yes (Other)
  Sender: FDA-Public Use
  Company Number: 200417106US

PATIENT
  Age: 55 Year
  Sex: Female

DRUGS (12)
  1. KETEK [Suspect]
     Indication: ACUTE SINUSITIS
     Dosage: 400 MG BID PO
     Route: 048
     Dates: start: 20040908, end: 20040908
  2. AMLODIPINE, BENAZEPRIL HYDROCHLORIDE (LOTREL) [Concomitant]
  3. ALLEGRA [Concomitant]
  4. PREVACID [Concomitant]
  5. VIOXX [Concomitant]
  6. LASIX [Concomitant]
  7. POTASSIUM [Concomitant]
  8. EFFEXOR [Concomitant]
  9. METOPROLOL SUCCINATE (TOPROL XL) [Concomitant]
  10. VERAPAMIL HYDROCHLORIDE (VERELAN PM) [Concomitant]
  11. CLONIDINE (CATAPRES) [Concomitant]
  12. PANCREATIC ENZYMES [Concomitant]

REACTIONS (7)
  - ANAPHYLACTIC REACTION [None]
  - DYSPNOEA [None]
  - ERYTHEMA [None]
  - ORAL PRURITUS [None]
  - SWELLING FACE [None]
  - SWOLLEN TONGUE [None]
  - URTICARIA [None]
